FAERS Safety Report 22203117 (Version 7)
Quarter: 2024Q2

REPORT INFORMATION
  Report Type: Report from Study
  Country: CA (occurrence: CA)
  Receive Date: 20230412
  Receipt Date: 20240517
  Transmission Date: 20240716
  Serious: Yes (Life-Threatening, Other)
  Sender: FDA-Public Use
  Company Number: CA-JNJFOC-20230417229

PATIENT
  Age: 62 Year
  Sex: Female
  Weight: 65 kg

DRUGS (7)
  1. STELARA [Suspect]
     Active Substance: USTEKINUMAB
     Indication: Crohn^s disease
     Dosage: ON 06-APR-2023, THE PATIENT RECEIVED 37TH USTEKINUMAB INFUSION FOR DOSE 90 MILLIGRAMS.? EXPIRY: 01-M
     Route: 058
     Dates: start: 20170717
  2. STELARA [Suspect]
     Active Substance: USTEKINUMAB
     Route: 058
  3. STELARA [Suspect]
     Active Substance: USTEKINUMAB
     Route: 058
  4. STELARA [Suspect]
     Active Substance: USTEKINUMAB
     Route: 058
  5. HYDROCORTISONE [Concomitant]
     Active Substance: HYDROCORTISONE
     Indication: Premedication
     Route: 065
  6. BENADRYL [Concomitant]
     Active Substance: DIPHENHYDRAMINE HYDROCHLORIDE
     Indication: Premedication
     Dosage: ADDITIONAL 50MG
     Route: 042
  7. SOLU-MEDROL [Concomitant]
     Active Substance: METHYLPREDNISOLONE SODIUM SUCCINATE
     Indication: Premedication
     Route: 042

REACTIONS (7)
  - Pharyngeal swelling [Recovering/Resolving]
  - Swollen tongue [Recovering/Resolving]
  - Drug hypersensitivity [Recovering/Resolving]
  - Throat irritation [Recovering/Resolving]
  - Throat tightness [Recovering/Resolving]
  - Dry throat [Recovering/Resolving]
  - Dysphagia [Recovered/Resolved]

NARRATIVE: CASE EVENT DATE: 20230405
